FAERS Safety Report 8351585-4 (Version None)
Quarter: 2012Q2

REPORT INFORMATION
  Report Type: 
  Country: None (occurrence: None)
  Receive Date: 20120511
  Receipt Date: 20120502
  Transmission Date: 20120825
  Serious: Yes (Hospitalization)
  Sender: FDA-Public Use
  Company Number: US-BIOGENIDEC-2012BI015354

PATIENT
  Age: 42 Year
  Sex: Male

DRUGS (2)
  1. AVONEX [Suspect]
     Indication: MULTIPLE SCLEROSIS
     Route: 030
     Dates: start: 20090629, end: 20110928
  2. VITAMIN TAB [Concomitant]

REACTIONS (3)
  - SYNCOPE [None]
  - CONVULSION [None]
  - HYPOXIC-ISCHAEMIC ENCEPHALOPATHY [None]
